FAERS Safety Report 8871550 (Version 5)
Quarter: 2015Q3

REPORT INFORMATION
  Report Type: Report from Study
  Country: CA (occurrence: CA)
  Receive Date: 20121029
  Receipt Date: 20150713
  Transmission Date: 20151125
  Serious: Yes (Hospitalization, Other)
  Sender: FDA-Public Use
  Company Number: CA-ROCHE-1125345

PATIENT
  Age: 55 Year
  Sex: Female
  Weight: 79.37 kg

DRUGS (10)
  1. LYRICA [Concomitant]
     Active Substance: PREGABALIN
  2. FLUOXETINE [Concomitant]
     Active Substance: FLUOXETINE\FLUOXETINE HYDROCHLORIDE
  3. ACTEMRA [Suspect]
     Active Substance: TOCILIZUMAB
     Indication: RHEUMATOID ARTHRITIS
     Route: 042
     Dates: start: 20120130, end: 20130415
  4. FOSAMAX [Concomitant]
     Active Substance: ALENDRONATE SODIUM
  5. LOSEC [Concomitant]
     Active Substance: OMEPRAZOLE
     Dosage: STOMACH
     Route: 065
  6. ULTRADOL [Concomitant]
  7. NAPROXEN. [Concomitant]
     Active Substance: NAPROXEN
     Route: 065
  8. HYDROMORPHONE [Concomitant]
     Active Substance: HYDROMORPHONE
  9. RALIVIA [Concomitant]
     Active Substance: TRAMADOL HYDROCHLORIDE
  10. XELJANZ [Concomitant]
     Active Substance: TOFACITINIB CITRATE

REACTIONS (6)
  - Femur fracture [Not Recovered/Not Resolved]
  - Clostridium difficile infection [Not Recovered/Not Resolved]
  - Bronchitis [Unknown]
  - Ingrowing nail [Not Recovered/Not Resolved]
  - Fall [Unknown]
  - Localised infection [Unknown]

NARRATIVE: CASE EVENT DATE: 201207
